FAERS Safety Report 6901532-4 (Version None)
Quarter: 2010Q3

REPORT INFORMATION
  Report Type: 
  Country: None (occurrence: None)
  Receive Date: 20100803
  Receipt Date: 20080221
  Transmission Date: 20110219
  Serious: Yes (Other)
  Sender: FDA-Public Use
  Company Number: US-PFIZER INC-2008017805

PATIENT
  Sex: Female
  Weight: 77.1 kg

DRUGS (15)
  1. LYRICA [Suspect]
     Indication: PAIN
     Route: 048
     Dates: start: 20080219, end: 20080221
  2. METHADONE HCL [Concomitant]
  3. LORAZEPAM [Concomitant]
  4. AMOXICILLIN [Concomitant]
  5. MYCELEX [Concomitant]
  6. PREDNISOLONE [Concomitant]
  7. VITAMIN TAB [Concomitant]
  8. TERIPARATIDE [Concomitant]
  9. REQUIP [Concomitant]
  10. SIMVASTATIN [Concomitant]
  11. ZETIA [Concomitant]
  12. AMBIEN [Concomitant]
  13. CHLORHEXIDINE GLUCONATE [Concomitant]
  14. PREVACID [Concomitant]
  15. NEXIUM [Concomitant]

REACTIONS (6)
  - FEELING ABNORMAL [None]
  - GAIT DISTURBANCE [None]
  - HALLUCINATION, VISUAL [None]
  - MALAISE [None]
  - SOMNOLENCE [None]
  - VOMITING [None]
